FAERS Safety Report 8889508 (Version 1)
Quarter: 2012Q4

REPORT INFORMATION
  Report Type: 
  Country: US (occurrence: US)
  Receive Date: 20121107
  Receipt Date: 20121107
  Transmission Date: 20130627
  Serious: Yes (Other)
  Sender: FDA-Public Use
  Company Number: US-TARO-2012P1061716

PATIENT
  Age: 70 Year
  Sex: Female
  Weight: 75.75 kg

DRUGS (6)
  1. CLORAZEPATE DIPOTASSIUM [Suspect]
     Route: 048
  2. CLORAZEPATE DIPOTASSIUM [Suspect]
     Dates: start: 201203
  3. SIMVASTATIN [Concomitant]
     Dates: start: 2005
  4. OMEPRAZOLE [Concomitant]
     Dates: start: 2007
  5. LOSARTAN [Concomitant]
  6. HYDROXYZINE [Concomitant]

REACTIONS (7)
  - Arthritis [Not Recovered/Not Resolved]
  - Diabetes mellitus [Not Recovered/Not Resolved]
  - Drug ineffective for unapproved indication [Not Recovered/Not Resolved]
  - Osteoporosis [Not Recovered/Not Resolved]
  - Chronic obstructive pulmonary disease [Not Recovered/Not Resolved]
  - Tremor [Unknown]
  - Product substitution issue [None]
